FAERS Safety Report 9418885 (Version 1)
Quarter: 2013Q3

REPORT INFORMATION
  Report Type: Spontaneous
  Country: US (occurrence: US)
  Receive Date: 20130725
  Receipt Date: 20130725
  Transmission Date: 20140515
  Serious: No
  Sender: FDA-Public Use
  Company Number: US-BAYER-2013-089827

PATIENT
  Age: 62 Year
  Sex: Male
  Weight: 78 kg

DRUGS (3)
  1. ALEVE TABLET [Suspect]
     Indication: BACK PAIN
     Dosage: UNK DF, UNK
     Route: 048
  2. DIOVAN [Concomitant]
  3. ASPIRIN [Concomitant]

REACTIONS (4)
  - Local swelling [Recovered/Resolved]
  - Pruritus [Recovered/Resolved]
  - Incorrect dose administered [None]
  - Expired drug administered [None]
